FAERS Safety Report 6657132-7 (Version None)
Quarter: 2010Q1

REPORT INFORMATION
  Report Type: 
  Country: None (occurrence: None)
  Receive Date: 20100330
  Receipt Date: 20100326
  Transmission Date: 20100710
  Serious: Yes (Hospitalization)
  Sender: FDA-Public Use
  Company Number: CN-ELI_LILLY_AND_COMPANY-CN201003007261

PATIENT
  Age: 76 Year
  Sex: Male
  Weight: 55 kg

DRUGS (6)
  1. PRASUGREL HYDROCHLORIDE [Suspect]
     Indication: ACUTE MYOCARDIAL INFARCTION
     Dosage: 30 MG, LOADING DOSE
     Route: 048
     Dates: start: 20091222
  2. PRASUGREL HYDROCHLORIDE [Suspect]
     Dosage: 5 MG, MAINTENANCE DOSE
     Route: 048
  3. LIPITOR [Concomitant]
     Indication: CORONARY ARTERY DISEASE
     Dates: start: 20091222
  4. ASPIRIN [Concomitant]
     Indication: CORONARY ARTERY DISEASE
     Dosage: UNK, UNK
     Dates: start: 20091222
  5. TRITACE [Concomitant]
     Indication: CORONARY ARTERY DISEASE
     Dosage: UNK, UNK
     Dates: start: 20091222
  6. BETALOC [Concomitant]
     Indication: CORONARY ARTERY DISEASE
     Dosage: UNK, UNK
     Dates: start: 20091222

REACTIONS (1)
  - ALCOHOL WITHDRAWAL SYNDROME [None]
